FAERS Safety Report 16563429 (Version 6)
Quarter: 2021Q1

REPORT INFORMATION
  Report Type: Spontaneous
  Country: CA (occurrence: CA)
  Receive Date: 20190712
  Receipt Date: 20210305
  Transmission Date: 20210419
  Serious: Yes (Death, Life-Threatening, Hospitalization, Other)
  Sender: FDA-Public Use
  Company Number: CA-AUROBINDO-AUR-APL-2019-038272

PATIENT
  Age: 6 Day
  Weight: .56 kg

DRUGS (30)
  1. AMPICILLIN [Suspect]
     Active Substance: AMPICILLIN
     Indication: ANTIBIOTIC PROPHYLAXIS
  2. MEROPENEM INJECTION [Suspect]
     Active Substance: MEROPENEM
     Indication: BACILLUS INFECTION
  3. PIPERACILLIN AND TAZOBACTAM [Suspect]
     Active Substance: PIPERACILLIN SODIUM\TAZOBACTAM SODIUM
     Indication: BACILLUS INFECTION
  4. AMPHOTERICIN B. [Suspect]
     Active Substance: AMPHOTERICIN B
     Indication: ANTIBIOTIC THERAPY
  5. FLUCONAZOLE. [Suspect]
     Active Substance: FLUCONAZOLE
     Indication: BACILLUS INFECTION
  6. TOBRAMYCIN. [Suspect]
     Active Substance: TOBRAMYCIN
     Indication: SEPTIC SHOCK
  7. AMPICILLIN [Suspect]
     Active Substance: AMPICILLIN
     Indication: SEPTIC SHOCK
  8. AMPICILLIN [Suspect]
     Active Substance: AMPICILLIN
     Indication: ANTIBIOTIC THERAPY
  9. PIPERACILLIN AND TAZOBACTAM [Suspect]
     Active Substance: PIPERACILLIN SODIUM\TAZOBACTAM SODIUM
     Indication: ANTIBIOTIC THERAPY
     Dosage: UNK
     Route: 065
     Dates: start: 2016
  10. VANCOMYCIN HYDROCHLORIDE INJECTION [Suspect]
     Active Substance: VANCOMYCIN HYDROCHLORIDE
     Indication: ANTIBIOTIC THERAPY
     Dosage: UNK
     Route: 065
     Dates: start: 2016
  11. DEXAMETHASONE. [Suspect]
     Active Substance: DEXAMETHASONE
     Indication: BRONCHOPULMONARY DYSPLASIA
  12. TOBRAMYCIN. [Suspect]
     Active Substance: TOBRAMYCIN
     Indication: AMNIOTIC CAVITY INFECTION
  13. VANCOMYCIN HYDROCHLORIDE INJECTION [Suspect]
     Active Substance: VANCOMYCIN HYDROCHLORIDE
     Indication: BACILLUS INFECTION
  14. VANCOMYCIN HYDROCHLORIDE INJECTION [Suspect]
     Active Substance: VANCOMYCIN HYDROCHLORIDE
     Indication: SEPTIC SHOCK
     Dosage: UNK
     Route: 042
  15. FLUCONAZOLE. [Suspect]
     Active Substance: FLUCONAZOLE
     Indication: SEPTIC SHOCK
     Dosage: UNK
     Route: 042
  16. AMPICILLIN [Suspect]
     Active Substance: AMPICILLIN
     Indication: BACILLUS INFECTION
  17. MEROPENEM INJECTION [Suspect]
     Active Substance: MEROPENEM
     Indication: ANTIBIOTIC THERAPY
     Dosage: UNK
     Route: 065
     Dates: start: 2016
  18. PIPERACILLIN AND TAZOBACTAM [Suspect]
     Active Substance: PIPERACILLIN SODIUM\TAZOBACTAM SODIUM
     Indication: SEPTIC SHOCK
  19. DEXAMETHASONE. [Suspect]
     Active Substance: DEXAMETHASONE
     Indication: CHOLESTASIS
     Dosage: UNK
     Route: 065
  20. FLUCONAZOLE. [Suspect]
     Active Substance: FLUCONAZOLE
     Indication: ANTIBIOTIC THERAPY
     Dosage: UNK
     Route: 065
     Dates: start: 2016
  21. SULFATRIM [Suspect]
     Active Substance: SULFAMETHOXAZOLE\TRIMETHOPRIM
     Indication: BACILLUS INFECTION
  22. SULFATRIM [Suspect]
     Active Substance: SULFAMETHOXAZOLE\TRIMETHOPRIM
     Indication: ANTIBIOTIC THERAPY
     Dosage: UNK
     Route: 065
     Dates: start: 2016
  23. AMPICILLIN [Suspect]
     Active Substance: AMPICILLIN
     Indication: AMNIOTIC CAVITY INFECTION
     Dosage: UNK
     Route: 042
     Dates: start: 2016
  24. MEROPENEM INJECTION [Suspect]
     Active Substance: MEROPENEM
     Indication: SEPTIC SHOCK
  25. TOBRAMYCIN. [Suspect]
     Active Substance: TOBRAMYCIN
     Indication: ANTIBIOTIC PROPHYLAXIS
     Dosage: UNK
     Route: 065
     Dates: start: 2016
  26. TOBRAMYCIN. [Suspect]
     Active Substance: TOBRAMYCIN
     Indication: ANTIBIOTIC THERAPY
  27. TOBRAMYCIN. [Suspect]
     Active Substance: TOBRAMYCIN
     Indication: BACILLUS INFECTION
  28. AMPHOTERICIN B. [Suspect]
     Active Substance: AMPHOTERICIN B
     Indication: SEPTIC SHOCK
     Dosage: UNK
     Route: 065
     Dates: start: 2016
  29. DEXAMETHASONE. [Suspect]
     Active Substance: DEXAMETHASONE
     Indication: BRONCHOPULMONARY DYSPLASIA
     Dosage: 0.15 MILLIGRAM/KILOGRAM, ONCE A DAY  STARTED ON DOL16
     Route: 031
     Dates: start: 2016, end: 2016
  30. SULFATRIM [Suspect]
     Active Substance: SULFAMETHOXAZOLE\TRIMETHOPRIM
     Indication: SEPTIC SHOCK

REACTIONS (2)
  - Septic shock [Fatal]
  - Drug ineffective [Fatal]

NARRATIVE: CASE EVENT DATE: 2016
